FAERS Safety Report 23970215 (Version 2)
Quarter: 2025Q2

REPORT INFORMATION
  Report Type: Spontaneous
  Country: CN (occurrence: CN)
  Receive Date: 20240613
  Receipt Date: 20250608
  Transmission Date: 20250716
  Serious: Yes (Hospitalization)
  Sender: COHERUS
  Company Number: CN-SHANGHAI JUNSHI BIOSCIENCES CO., LTD.-CN2024010233

PATIENT

DRUGS (3)
  1. TORIPALIMAB [Suspect]
     Active Substance: TORIPALIMAB
     Indication: Uterine cancer
     Dosage: 200 MG (D1), ONCE EVERY 3 WEEKS
     Route: 041
     Dates: start: 20240328
  2. CATEQUENTINIB [Suspect]
     Active Substance: CATEQUENTINIB
     Indication: Uterine cancer
     Route: 048
     Dates: start: 20240328, end: 20240413
  3. ETOPOSIDE [Suspect]
     Active Substance: ETOPOSIDE
     Indication: Uterine cancer
     Route: 041
     Dates: start: 20240328, end: 20240328

REACTIONS (2)
  - Myelosuppression [Recovering/Resolving]
  - Off label use [Unknown]

NARRATIVE: CASE EVENT DATE: 20240328
